FAERS Safety Report 5096093-1 (Version None)
Quarter: 2006Q3

REPORT INFORMATION
  Report Type: 
  Country: None (occurrence: None)
  Receive Date: 20060830
  Receipt Date: 20060816
  Transmission Date: 20061208
  Serious: Yes (Life-Threatening, Hospitalization)
  Sender: FDA-Public Use
  Company Number: MEDI-0004601

PATIENT
  Age: 69 Year
  Sex: Female

DRUGS (6)
  1. ETHYOL [Suspect]
     Indication: RADIOTHERAPY
     Dosage: 500 MG, EACH DAY EXCEPT WEEKENDS AND HOLIDAYS, SUBCUTANEOUS
     Route: 058
     Dates: start: 20060323, end: 20060424
  2. RADIATION THERAPY [Concomitant]
  3. KYTRIL [Concomitant]
  4. MYSOLINE [Concomitant]
  5. PROPRANOLOL [Concomitant]
  6. VYTORIN 10-40 (SIMVASTATIN, EZETIMIBE) [Concomitant]

REACTIONS (8)
  - ANAEMIA OF CHRONIC DISEASE [None]
  - BURNS FIRST DEGREE [None]
  - DERMATITIS [None]
  - HAEMORRHAGE [None]
  - HEPATITIS [None]
  - HYPERSENSITIVITY [None]
  - RADIATION SKIN INJURY [None]
  - STEVENS-JOHNSON SYNDROME [None]
